FAERS Safety Report 22200492 (Version 1)
Quarter: 2023Q2

REPORT INFORMATION
  Report Type: Spontaneous
  Country: CN (occurrence: CN)
  Receive Date: 20230412
  Receipt Date: 20230412
  Transmission Date: 20230722
  Serious: Yes (Other)
  Sender: FDA-Public Use
  Company Number: CN-SUN PHARMACEUTICAL INDUSTRIES LTD-2023R1-382033

PATIENT
  Age: 42 Year
  Sex: Male

DRUGS (3)
  1. DECITABINE [Suspect]
     Active Substance: DECITABINE
     Indication: Chronic myeloid leukaemia
     Dosage: UNK
     Route: 065
  2. PONATINIB [Suspect]
     Active Substance: PONATINIB
     Indication: Chronic myeloid leukaemia
     Dosage: 45 MILLIGRAM, QD
     Route: 065
  3. VENETOCLAX [Suspect]
     Active Substance: VENETOCLAX
     Indication: Chronic myeloid leukaemia
     Dosage: UNK
     Route: 065

REACTIONS (1)
  - Therapy partial responder [Unknown]
